FAERS Safety Report 15995293 (Version 1)
Quarter: 2019Q1

REPORT INFORMATION
  Report Type: Spontaneous
  Country: US (occurrence: US)
  Receive Date: 20190222
  Receipt Date: 20190222
  Transmission Date: 20190418
  Serious: Yes (Other)
  Sender: FDA-Public Use
  Company Number: US-BAYER-2019-035629

PATIENT
  Age: 68 Year
  Sex: Female

DRUGS (7)
  1. ALKA-SELTZER LEMON LIME [Suspect]
     Active Substance: ANHYDROUS CITRIC ACID\ASPIRIN\SODIUM BICARBONATE
     Indication: DIARRHOEA
  2. ALKA-SELTZER GOLD [Suspect]
     Active Substance: ANHYDROUS CITRIC ACID\POTASSIUM BICARBONATE\SODIUM BICARBONATE
     Indication: IRRITABLE BOWEL SYNDROME
     Dosage: 1 DF, QD
     Route: 048
  3. MEASLES VIRUS VACCINE, LIVE [Suspect]
     Active Substance: MEASLES VIRUS STRAIN ENDERS^ ATTENUATED EDMONSTON LIVE ANTIGEN
  4. ALKA-SELTZER LEMON LIME [Suspect]
     Active Substance: ANHYDROUS CITRIC ACID\ASPIRIN\SODIUM BICARBONATE
     Indication: NAUSEA
     Dosage: 1 TABLETS SOMETIME, 2 SOMETIMES PER DAY
     Route: 048
  5. ALKA-SELTZER GOLD [Suspect]
     Active Substance: ANHYDROUS CITRIC ACID\POTASSIUM BICARBONATE\SODIUM BICARBONATE
     Indication: DIARRHOEA
  6. ALKA-SELTZER LEMON LIME [Suspect]
     Active Substance: ANHYDROUS CITRIC ACID\ASPIRIN\SODIUM BICARBONATE
     Indication: IRRITABLE BOWEL SYNDROME
  7. ALKA-SELTZER GOLD [Suspect]
     Active Substance: ANHYDROUS CITRIC ACID\POTASSIUM BICARBONATE\SODIUM BICARBONATE
     Indication: NAUSEA

REACTIONS (3)
  - Underdose [None]
  - Drug dependence [Unknown]
  - Product use in unapproved indication [Unknown]
